FAERS Safety Report 5955539-4 (Version None)
Quarter: 2008Q4

REPORT INFORMATION
  Report Type: 
  Country: None (occurrence: None)
  Receive Date: 20081117
  Receipt Date: 20081105
  Transmission Date: 20090506
  Serious: Yes (Hospitalization, Other)
  Sender: FDA-Public Use
  Company Number: US-PFIZER INC-2008051782

PATIENT
  Sex: Female
  Weight: 85 kg

DRUGS (8)
  1. LIPITOR [Suspect]
     Indication: CATHETERISATION CARDIAC
     Route: 048
     Dates: start: 20080304, end: 20080413
  2. PLAVIX [Suspect]
     Indication: HYPERTENSION
     Route: 048
     Dates: start: 20080304, end: 20080416
  3. PLAVIX [Suspect]
     Indication: CATHETERISATION CARDIAC
  4. TICLID [Suspect]
     Dates: start: 20080511, end: 20080619
  5. ANTIBIOTICS [Suspect]
  6. ACETYLSALICYLIC ACID SRT [Suspect]
     Indication: MYOCARDIAL INFARCTION
     Dates: start: 20001116
  7. METOPROLOL TARTRATE [Concomitant]
     Indication: MYOCARDIAL INFARCTION
     Dates: start: 20001106
  8. RAMIPRIL [Concomitant]
     Indication: MYOCARDIAL INFARCTION
     Dates: start: 20001106

REACTIONS (8)
  - AGEUSIA [None]
  - DEHYDRATION [None]
  - DIARRHOEA [None]
  - DYSGEUSIA [None]
  - ORAL DISORDER [None]
  - REGURGITATION [None]
  - VOMITING [None]
  - WEIGHT DECREASED [None]
